FAERS Safety Report 6028793-0 (Version None)
Quarter: 2009Q1

REPORT INFORMATION
  Report Type: 
  Country: None (occurrence: None)
  Receive Date: 20090106
  Receipt Date: 20090102
  Transmission Date: 20090719
  Serious: Yes (Other)
  Sender: FDA-Public Use
  Company Number: B0552498A

PATIENT
  Age: 78 Year
  Sex: Male

DRUGS (2)
  1. AVIDART [Suspect]
     Indication: BENIGN PROSTATIC HYPERPLASIA
     Dosage: .5MG PER DAY
     Route: 048
     Dates: start: 20071001
  2. ARCOXIA [Suspect]
     Dosage: 60MG PER DAY
     Route: 048
     Dates: start: 20060201

REACTIONS (1)
  - TYPE 2 DIABETES MELLITUS [None]
